FAERS Safety Report 24049437 (Version 1)
Quarter: 2024Q3

REPORT INFORMATION
  Report Type: Spontaneous
  Country: UA (occurrence: UA)
  Receive Date: 20240704
  Receipt Date: 20240704
  Transmission Date: 20241016
  Serious: Yes (Other)
  Sender: ALKEM
  Company Number: UA-ALKEM LABORATORIES LIMITED-UA-ALKEM-2024-09576

PATIENT
  Sex: Female

DRUGS (1)
  1. IBUPROFEN [Suspect]
     Active Substance: IBUPROFEN
     Indication: Respiratory tract infection
     Dosage: UNK (HIGH DOSE)
     Route: 065

REACTIONS (1)
  - Exposure during pregnancy [Unknown]
